FAERS Safety Report 7504337-9 (Version None)
Quarter: 2011Q2

REPORT INFORMATION
  Report Type: 
  Country: None (occurrence: None)
  Receive Date: 20110525
  Receipt Date: 20110513
  Transmission Date: 20111010
  Serious: Yes (Life-Threatening)
  Sender: FDA-Public Use
  Company Number: FR-UCBSA-031413

PATIENT
  Sex: Female
  Weight: 57 kg

DRUGS (9)
  1. PHENYTOIN [Concomitant]
     Indication: EPILEPSY
     Dosage: 2 TABLETS DAILY
     Route: 048
  2. PHENYTOIN [Concomitant]
     Dosage: WEANING ONGOING: 2 TABLETS DAILY TO HALF TABLET DAILY
     Route: 048
  3. VIMPAT [Suspect]
     Route: 048
     Dates: start: 20110308, end: 20110313
  4. TEGRETOL [Concomitant]
     Route: 048
  5. VIMPAT [Suspect]
     Indication: EPILEPSY
     Route: 048
     Dates: start: 20110224, end: 20110227
  6. VIMPAT [Suspect]
     Route: 048
     Dates: start: 20110228, end: 20110307
  7. VIMPAT [Suspect]
     Route: 048
     Dates: start: 20110314, end: 20110323
  8. TEGRETOL [Concomitant]
     Indication: EPILEPSY
     Route: 048
  9. CLONAZEPAM [Concomitant]
     Indication: EPILEPSY
     Dosage: 10 ORAL DROPS
     Route: 060

REACTIONS (5)
  - FOOD AVERSION [None]
  - VOMITING [None]
  - DECREASED APPETITE [None]
  - AUTONOMIC NEUROPATHY [None]
  - NAUSEA [None]
